FAERS Safety Report 7327952-4 (Version None)
Quarter: 2011Q1

REPORT INFORMATION
  Report Type: 
  Country: None (occurrence: None)
  Receive Date: 20110225
  Receipt Date: 20110225
  Transmission Date: 20110831
  Serious: Yes (Other)
  Sender: FDA-Public Use
  Company Number: None

PATIENT
  Age: 61 Year
  Sex: Female
  Weight: 65.7716 kg

DRUGS (2)
  1. MEFLOQUINE HYDROCHLORIDE [Suspect]
     Indication: MALARIA PROPHYLAXIS
     Dosage: 250MG ONCE WEEKLY ORAL 12/31, 1/7, 1/14, 1/21
     Route: 048
  2. LISINOPRIL [Concomitant]

REACTIONS (10)
  - DEPRESSION [None]
  - PARAESTHESIA [None]
  - BRADYCARDIA [None]
  - ASTHENIA [None]
  - HEADACHE [None]
  - FLUSHING [None]
  - HYPERHIDROSIS [None]
  - CHEST PAIN [None]
  - DIZZINESS [None]
  - NAUSEA [None]
